FAERS Safety Report 18495099 (Version 1)
Quarter: 2020Q4

REPORT INFORMATION
  Report Type: Other
  Country: AU (occurrence: AU)
  Receive Date: 20201112
  Receipt Date: 20201112
  Transmission Date: 20210114
  Serious: Yes (Other)
  Sender: FDA-Public Use
  Company Number: AU-ACI HEALTHCARE LIMITED-2095849

PATIENT
  Age: 24 Month
  Sex: Male
  Weight: 14 kg

DRUGS (1)
  1. LEVETIRACETAM. [Suspect]
     Active Substance: LEVETIRACETAM
     Indication: SEIZURE
     Route: 065

REACTIONS (1)
  - Drug ineffective [Unknown]
